FAERS Safety Report 18240333 (Version 5)
Quarter: 2025Q2

REPORT INFORMATION
  Report Type: Spontaneous
  Country: IT (occurrence: IT)
  Receive Date: 20200908
  Receipt Date: 20250416
  Transmission Date: 20250717
  Serious: Yes (Other)
  Sender: Kenvue
  Company Number: IT-JNJFOC-20200903017

PATIENT

DRUGS (27)
  1. CETIRIZINE HYDROCHLORIDE [Suspect]
     Active Substance: CETIRIZINE HYDROCHLORIDE
     Indication: Pruritus
     Dosage: 1 MG/KG DAILY FREQUENCY TIME: 1 FREQUENCY TIME UNIT: DAYS
     Route: 065
  2. IBUPROFEN [Suspect]
     Active Substance: IBUPROFEN
     Indication: Pain
     Route: 065
  3. TRAMADOL [Suspect]
     Active Substance: TRAMADOL
     Indication: Pain
     Dosage: 6 MG/KG DAILY FREQUENCY TIME: 1 FREQUENCY TIME UNIT: DAYS
     Route: 065
  4. TRAMADOL [Suspect]
     Active Substance: TRAMADOL
     Dosage: 5 MILLIGRAM/KILOGRAM, DAILY
     Route: 065
  5. ACETAMINOPHEN [Suspect]
     Active Substance: ACETAMINOPHEN
     Indication: Pain
     Route: 065
  6. ALPRAZOLAM [Suspect]
     Active Substance: ALPRAZOLAM
     Indication: Anxiety
     Dosage: .01 MG/KG DAILYOFF LABEL USE FREQUENCY TIME: 1 FREQUENCY TIME UNIT: DAYS
     Route: 065
  7. ALPRAZOLAM [Suspect]
     Active Substance: ALPRAZOLAM
     Indication: Sleep disorder
     Dosage: 0.01 MG/KG (PER DAY)
     Route: 065
  8. ALPRAZOLAM [Suspect]
     Active Substance: ALPRAZOLAM
     Indication: Depression
     Route: 065
  9. TRAZODONE [Suspect]
     Active Substance: TRAZODONE HYDROCHLORIDE
     Indication: Anxiety
     Dosage: 1 MG/KG DAILY FREQUENCY TIME: 1 FREQUENCY TIME UNIT: DAYS
     Route: 065
  10. TRAZODONE [Suspect]
     Active Substance: TRAZODONE HYDROCHLORIDE
     Indication: Sleep disorder
     Route: 065
  11. TRAZODONE [Suspect]
     Active Substance: TRAZODONE HYDROCHLORIDE
     Indication: Depression
     Route: 065
  12. MELATONIN [Suspect]
     Active Substance: MELATONIN
     Indication: Sleep disorder
     Dosage: .05 MG/KG DAILY FREQUENCY TIME: 1 FREQUENCY TIME UNIT: DAYS
     Route: 065
  13. CHLORPHENIRAMINE MALEATE [Suspect]
     Active Substance: CHLORPHENIRAMINE MALEATE
     Indication: Pruritus
     Dosage: 0.2 MILLIGRAM/KILOGRAM, DAILY FREQUENCY TIME: 1 FREQUENCY TIME UNIT: DAYS
     Route: 065
  14. CHLORPHENIRAMINE MALEATE [Suspect]
     Active Substance: CHLORPHENIRAMINE MALEATE
     Indication: Product used for unknown indication
     Dosage: 0.2 MG/KG (PER DAY) FREQUENCY TIME: 1 FREQUENCY TIME UNIT: DAYS
     Route: 065
  15. DEXMEDETOMIDINE [Suspect]
     Active Substance: DEXMEDETOMIDINE
     Indication: Sleep disorder
     Route: 045
  16. ARIPIPRAZOLE [Suspect]
     Active Substance: ARIPIPRAZOLE
     Indication: Anxiety
     Dosage: .3 MG/KG DAILY FREQUENCY TIME: 1 FREQUENCY TIME UNIT: DAYS
     Route: 065
  17. ARIPIPRAZOLE [Suspect]
     Active Substance: ARIPIPRAZOLE
     Indication: Sleep disorder
     Route: 065
  18. ARIPIPRAZOLE [Suspect]
     Active Substance: ARIPIPRAZOLE
     Indication: Depression
     Route: 065
  19. GABAPENTIN [Suspect]
     Active Substance: GABAPENTIN
     Indication: Pain
     Dosage: 25 MG/KG DAILY FREQUENCY TIME: 1 FREQUENCY TIME UNIT: DAYS
     Route: 065
  20. GABAPENTIN [Suspect]
     Active Substance: GABAPENTIN
     Indication: Product used for unknown indication
     Route: 065
  21. NIAPRAZINE [Suspect]
     Active Substance: NIAPRAZINE
     Indication: Sleep disorder
     Dosage: 1 MG/KG DAILYADDITIONAL INFO: ADDITIONAL INFO: ADDITIONAL INFO: OFF LABEL USE FREQUENCY TIME: 1 FREQ
     Route: 065
  22. NIAPRAZINE [Suspect]
     Active Substance: NIAPRAZINE
     Indication: Product used for unknown indication
     Dosage: 1 MG/KG, QD FREQUENCY TIME: 1 FREQUENCY TIME UNIT: DAYS
     Route: 065
  23. DIAZEPAM [Suspect]
     Active Substance: DIAZEPAM
     Indication: Sleep disorder
     Dosage: 0.1 MILLIGRAM/KILOGRAM, DAILYADDITIONAL INFO: ADDITIONAL INFO: ADDITIONAL INFO: OFF LABEL USE FREQUE
     Route: 065
  24. METAMIZOLE [Suspect]
     Active Substance: METAMIZOLE
     Indication: Pain
     Dosage: 20 MG/KG DAILY FREQUENCY TIME: 1 FREQUENCY TIME UNIT: DAYS
     Route: 065
  25. METAMIZOLE [Suspect]
     Active Substance: METAMIZOLE
     Indication: Product used for unknown indication
     Route: 065
  26. KETAMINE [Concomitant]
     Active Substance: KETAMINE
     Indication: Sedation
     Dosage: UNK (MAXIMUM DOSE REQUIRED 3.5 MG/KG/DAY) FREQUENCY TIME: 1 FREQUENCY TIME UNIT: DAYS
     Route: 065
  27. PROPOFOL [Concomitant]
     Active Substance: PROPOFOL
     Indication: Sedation
     Dosage: UNK (MAXIMUM DOSE REQUIRED 5 MG/KG/DAY) 3 TIMES FREQUENCY TIME: 1 FREQUENCY TIME UNIT: WEEKS FREQUEN
     Route: 065

REACTIONS (9)
  - Quality of life decreased [Recovering/Resolving]
  - Fatigue [Recovering/Resolving]
  - Paradoxical drug reaction [Recovering/Resolving]
  - Agitation [Recovering/Resolving]
  - Sleep disorder [Recovering/Resolving]
  - Irritability [Recovering/Resolving]
  - Depressed level of consciousness [Recovering/Resolving]
  - Confusional arousal [Unknown]
  - Off label use [Unknown]
